FAERS Safety Report 14667136 (Version 1)
Quarter: 2018Q1

REPORT INFORMATION
  Report Type: Spontaneous
  Country: FR (occurrence: FR)
  Receive Date: 20180322
  Receipt Date: 20180322
  Transmission Date: 20180509
  Serious: Yes (Other)
  Sender: FDA-Public Use
  Company Number: FR-MERCK KGAA-2044277

PATIENT
  Age: 46 Year
  Sex: Female

DRUGS (1)
  1. NOVOTHYROX [Suspect]
     Active Substance: LEVOTHYROXINE SODIUM
     Indication: HYPOTHYROIDISM
     Dates: start: 201705

REACTIONS (8)
  - Abdominal pain upper [None]
  - Loss of personal independence in daily activities [None]
  - Anxiety [None]
  - Haematochezia [None]
  - Gastrointestinal motility disorder [Recovering/Resolving]
  - Rectal haemorrhage [None]
  - Diarrhoea [None]
  - Serum ferritin increased [None]

NARRATIVE: CASE EVENT DATE: 201706
